FAERS Safety Report 19740605 (Version 1)
Quarter: 2021Q3

REPORT INFORMATION
  Report Type: Spontaneous
  Country: US (occurrence: US)
  Receive Date: 20210824
  Receipt Date: 20210824
  Transmission Date: 20211014
  Serious: No
  Sender: FDA-Public Use
  Company Number: US-MYLANLABS-2021M1048732

PATIENT
  Age: 65 Year
  Sex: Female
  Weight: 84.36 kg

DRUGS (1)
  1. YUPELRI [Suspect]
     Active Substance: REVEFENACIN
     Indication: CHRONIC OBSTRUCTIVE PULMONARY DISEASE
     Dosage: 175MCG/3ML

REACTIONS (3)
  - Swollen tongue [Unknown]
  - Urticaria [Unknown]
  - Dyspnoea [Unknown]
